FAERS Safety Report 17690565 (Version 3)
Quarter: 2020Q2

REPORT INFORMATION
  Report Type: Spontaneous
  Country: FR (occurrence: FR)
  Receive Date: 20200421
  Receipt Date: 20200507
  Transmission Date: 20200714
  Serious: Yes (Hospitalization, Other)
  Sender: FDA-Public Use
  Company Number: FR-AUROBINDO-AUR-APL-2020-019035

PATIENT
  Age: 18 Year
  Sex: Female

DRUGS (7)
  1. BISOPROLOL FILM-COATED TABLETS [Suspect]
     Active Substance: BISOPROLOL
     Indication: ARRHYTHMIA
     Dosage: 2.5 MILLIGRAM, DAILY
     Route: 065
  2. BISOPROLOL FILM-COATED TABLETS [Suspect]
     Active Substance: BISOPROLOL
     Dosage: 1.25 MILLIGRAM, ONCE A DAY
     Route: 065
  3. SOTALOL. [Suspect]
     Active Substance: SOTALOL
     Indication: ARRHYTHMIA
     Dosage: 80 MILLIGRAM
     Route: 065
  4. RAMIPRIL. [Concomitant]
     Active Substance: RAMIPRIL
     Indication: PRODUCT USED FOR UNKNOWN INDICATION
     Dosage: 1.25 MILLIGRAM
     Route: 065
  5. AMIODARONE TABLETS [Suspect]
     Active Substance: AMIODARONE
     Indication: ARRHYTHMIA
     Dosage: 200 MILLIGRAM, DAILY, LOADING DOSE
     Route: 065
  6. AMIODARONE TABLETS [Suspect]
     Active Substance: AMIODARONE
     Dosage: 6 GRAM, DAILY,LOADING DOSE
     Route: 065
  7. FLECAINIDE TABLETS [Suspect]
     Active Substance: FLECAINIDE
     Indication: ARRHYTHMIA
     Dosage: 100 MILLIGRAM, ONCE A DAY
     Route: 065

REACTIONS (2)
  - Drug ineffective [Unknown]
  - Treatment failure [Recovered/Resolved]
